FAERS Safety Report 6395481-0 (Version None)
Quarter: 2009Q4

REPORT INFORMATION
  Report Type: 
  Country: None (occurrence: None)
  Receive Date: 20091009
  Receipt Date: 20091002
  Transmission Date: 20100525
  Serious: Yes (Hospitalization)
  Sender: FDA-Public Use
  Company Number: BR-ABBOTT-09P-020-0577052-03

PATIENT
  Sex: Male
  Weight: 60.2 kg

DRUGS (3)
  1. RITONAVIR [Suspect]
     Indication: HIV INFECTION
     Route: 048
  2. TMC 125 [Concomitant]
     Indication: HIV INFECTION
  3. TMC114 [Concomitant]
     Indication: HIV INFECTION

REACTIONS (2)
  - CYTOMEGALOVIRUS CHORIORETINITIS [None]
  - LUNG INFECTION PSEUDOMONAL [None]
